FAERS Safety Report 10621659 (Version 1)
Quarter: 2014Q4

REPORT INFORMATION
  Report Type: Spontaneous
  Country: US (occurrence: None)
  Receive Date: 20141201
  Receipt Date: 20141201
  Transmission Date: 20150529
  Serious: No
  Sender: FDA-Public Use
  Company Number: None

PATIENT
  Age: 27 Year
  Sex: Male

DRUGS (1)
  1. STRIBILD [Suspect]
     Active Substance: COBICISTAT\ELVITEGRAVIR\EMTRICITABINE\TENOFOVIR DISOPROXIL FUMARATE
     Dates: start: 20140420

REACTIONS (4)
  - Hyperglycaemia [None]
  - Gingival bleeding [None]
  - Dry mouth [None]
  - Gingival pain [None]

NARRATIVE: CASE EVENT DATE: 20141101
